FAERS Safety Report 6830551-1 (Version None)
Quarter: 2010Q3

REPORT INFORMATION
  Report Type: 
  Country: None (occurrence: None)
  Receive Date: 20100709
  Receipt Date: 20100709
  Transmission Date: 20110219
  Serious: Yes (Other)
  Sender: FDA-Public Use
  Company Number: None

PATIENT
  Age: 60 Year
  Sex: Female
  Weight: 79.3795 kg

DRUGS (2)
  1. LEVAQUIN [Suspect]
     Indication: DIVERTICULITIS
     Dosage: 500MG 2X A DAY
     Dates: start: 20100614
  2. LEVAQUIN [Suspect]
     Indication: DIVERTICULITIS
     Dosage: 500MG 2X A DAY
     Dates: start: 20100615

REACTIONS (1)
  - VASCULITIS [None]
